FAERS Safety Report 8435668-6 (Version None)
Quarter: 2012Q2

REPORT INFORMATION
  Report Type: 
  Country: None (occurrence: None)
  Receive Date: 20120608
  Receipt Date: 20120530
  Transmission Date: 20120825
  Serious: Yes (Hospitalization)
  Sender: FDA-Public Use
  Company Number: 2012SP029619

PATIENT
  Age: 56 Year
  Sex: Male
  Weight: 70 kg

DRUGS (13)
  1. REBETOL [Suspect]
     Indication: HEPATITIS C
     Dosage: 800 MG;QD;PO 400 MG;QD;PO
     Route: 048
     Dates: start: 20120113, end: 20120419
  2. REBETOL [Suspect]
     Indication: HEPATITIS C
     Dosage: 800 MG;QD;PO 400 MG;QD;PO
     Route: 048
     Dates: start: 20120420
  3. TELAVIC (ANTIVIRALS NOS) [Suspect]
     Indication: HEPATITIS C
     Dosage: 2250 MG;QD;PO
     Route: 048
     Dates: start: 20120207, end: 20120430
  4. BRANUTE [Concomitant]
  5. LIVOSTIN [Concomitant]
  6. ALLEGRA [Concomitant]
  7. LOXOPROFEN [Concomitant]
  8. HIRUDOID [Concomitant]
  9. POSTERISAN [Concomitant]
  10. PEG-INTRON [Suspect]
     Indication: HEPATITIS C
     Dosage: 1.5 MCG/KG;QW;SC 1.2 MCG/KG;QW;SC
     Route: 058
     Dates: start: 20120113, end: 20120322
  11. PEG-INTRON [Suspect]
     Indication: HEPATITIS C
     Dosage: 1.5 MCG/KG;QW;SC 1.2 MCG/KG;QW;SC
     Route: 058
     Dates: start: 20120323
  12. SELBEX [Concomitant]
  13. ADOFEED [Concomitant]

REACTIONS (3)
  - PLATELET COUNT DECREASED [None]
  - ERYTHEMA [None]
  - OEDEMA [None]
